FAERS Safety Report 5312913-7 (Version None)
Quarter: 2007Q2

REPORT INFORMATION
  Report Type: 
  Country: None (occurrence: None)
  Receive Date: 20070424
  Receipt Date: 20070411
  Transmission Date: 20071010
  Serious: Yes (Hospitalization, Other)
  Sender: FDA-Public Use
  Company Number: 2007-00834

PATIENT
  Age: 75 Year
  Sex: Female

DRUGS (9)
  1. VELCADE [Suspect]
     Indication: MULTIPLE MYELOMA
     Dosage: 1.30 MG/M2
     Dates: start: 20070313, end: 20070315
  2. DECADRON [Suspect]
     Indication: MULTIPLE MYELOMA
     Dosage: 40.00 MG, ORAL
     Route: 048
     Dates: start: 20070301
  3. VITAMIN B12 [Concomitant]
  4. AMARYL [Concomitant]
  5. INSULIN (INSULIN) [Concomitant]
  6. ESCITALOPRAM (ESWCITALOPRAM) [Concomitant]
  7. SYNTROID (LEVOTHYROXINE SODIUM) [Concomitant]
  8. TEMAZEPAM [Concomitant]
  9. ALLOPURINOL [Concomitant]

REACTIONS (10)
  - ACUTE CORONARY SYNDROME [None]
  - AORTIC STENOSIS [None]
  - BLOOD ALBUMIN DECREASED [None]
  - BLOOD GLUCOSE DECREASED [None]
  - HEART VALVE CALCIFICATION [None]
  - HEPATIC CYST [None]
  - HYPERGLYCAEMIA [None]
  - MYOCARDIAL INFARCTION [None]
  - PANCREATITIS ACUTE [None]
  - RENAL CYST [None]
